FAERS Safety Report 9468261 (Version 2)
Quarter: 2013Q3

REPORT INFORMATION
  Report Type: Spontaneous
  Country: US (occurrence: US)
  Receive Date: 20130821
  Receipt Date: 20130913
  Transmission Date: 20140515
  Serious: No
  Sender: FDA-Public Use
  Company Number: US-PFIZER INC-2013241714

PATIENT
  Age: 58 Year
  Sex: Female
  Weight: 87.08 kg

DRUGS (1)
  1. LYRICA [Suspect]
     Indication: NERVE INJURY
     Dosage: 150 MG, 3X/DAY

REACTIONS (5)
  - Drug withdrawal syndrome [Unknown]
  - Malaise [Unknown]
  - Nausea [Unknown]
  - Asthenia [Unknown]
  - Pain [Unknown]
